FAERS Safety Report 5776554-X (Version None)
Quarter: 2008Q2

REPORT INFORMATION
  Report Type: 
  Country: None (occurrence: None)
  Receive Date: 20080616
  Receipt Date: 20080606
  Transmission Date: 20081010
  Serious: Yes (Hospitalization)
  Sender: FDA-Public Use
  Company Number: 2008SP011066

PATIENT
  Age: 59 Year
  Sex: Male
  Weight: 91 kg

DRUGS (1)
  1. NOXAFIL [Suspect]
     Indication: ANTIFUNGAL PROPHYLAXIS
     Dosage: 5 MG;TID;PO
     Route: 048
     Dates: start: 20080215, end: 20080526

REACTIONS (7)
  - CHILLS [None]
  - COUGH [None]
  - CYANOSIS [None]
  - DYSPNOEA [None]
  - HYPERTENSION [None]
  - POISONING [None]
  - PYREXIA [None]
